FAERS Safety Report 15772699 (Version 1)
Quarter: 2018Q4

REPORT INFORMATION
  Report Type: Spontaneous
  Country: NL (occurrence: NL)
  Receive Date: 20181228
  Receipt Date: 20181228
  Transmission Date: 20190205
  Serious: Yes (Life-Threatening)
  Sender: FDA-Public Use
  Company Number: NL-TEVA-2018-NL-992122

PATIENT
  Age: 58 Year
  Sex: Female
  Weight: 76 kg

DRUGS (8)
  1. METOCLOPRAMIDE. [Concomitant]
     Active Substance: METOCLOPRAMIDE
     Dosage: 3DD10MG
  2. DELTEPARINE INJECTIE 5000IE [Concomitant]
  3. METOPROLOL. [Concomitant]
     Active Substance: METOPROLOL
     Dosage: 50 MILLIGRAM DAILY; 1 DD 50 MG
  4. CAPECITABINE FILMOMHULDE TABLET, 500 MG (MILLIGRAM) [Suspect]
     Active Substance: CAPECITABINE
     Indication: COLON CANCER
     Dosage: 2DD 1659MG
     Route: 065
     Dates: start: 20181115, end: 20181119
  5. SIMVASTATINE [Concomitant]
     Active Substance: SIMVASTATIN
     Dosage: 40 MILLIGRAM DAILY; 1 DD 40 MG
  6. MACROGOL [Concomitant]
     Active Substance: POLYETHYLENE GLYCOLS
  7. LOSARTAN. [Concomitant]
     Active Substance: LOSARTAN
     Dosage: 100 MILLIGRAM DAILY; 1 DD 100 MG
  8. OXYCODON 5MG (OXYNORM) [Concomitant]
     Dosage: ZO NODIG

REACTIONS (4)
  - Arteriospasm coronary [Recovering/Resolving]
  - Cardiac arrest [Recovering/Resolving]
  - Myocardial infarction [Recovering/Resolving]
  - Ventricular fibrillation [Recovering/Resolving]

NARRATIVE: CASE EVENT DATE: 20181118
